FAERS Safety Report 10898400 (Version 1)
Quarter: 2015Q1

REPORT INFORMATION
  Report Type: Report from Study
  Country: US (occurrence: US)
  Receive Date: 20150309
  Receipt Date: 20150309
  Transmission Date: 20150721
  Serious: No
  Sender: FDA-Public Use
  Company Number: US-ABBVIE-14P-163-1221632-00

PATIENT
  Age: 32 Year
  Sex: Female
  Weight: 77.18 kg

DRUGS (2)
  1. IRON [Concomitant]
     Active Substance: IRON
     Indication: PRODUCT USED FOR UNKNOWN INDICATION
  2. LUPRON DEPOT [Suspect]
     Active Substance: LEUPROLIDE ACETATE
     Indication: ENDOMETRIOSIS
     Dates: start: 20131218

REACTIONS (7)
  - Body temperature increased [Recovered/Resolved]
  - Feeling cold [Not Recovered/Not Resolved]
  - Hot flush [Recovered/Resolved]
  - Weight increased [Recovered/Resolved]
  - Chest pain [Recovering/Resolving]
  - Urticaria [Recovered/Resolved]
  - Headache [Recovered/Resolved]

NARRATIVE: CASE EVENT DATE: 201403
